FAERS Safety Report 8343955-5 (Version None)
Quarter: 2012Q2

REPORT INFORMATION
  Report Type: 
  Country: None (occurrence: None)
  Receive Date: 20120508
  Receipt Date: 20120502
  Transmission Date: 20120825
  Serious: Yes (Hospitalization)
  Sender: FDA-Public Use
  Company Number: DE-B.I. PHARMACEUTICALS,INC./RIDGEFIELD-2012-DE-01170DE

PATIENT
  Age: 56 Year
  Sex: Male
  Weight: 105 kg

DRUGS (5)
  1. MELOXICAM [Suspect]
     Indication: ARTHRALGIA
     Route: 048
  2. LEVOTHYROXINE SODIUM [Concomitant]
     Indication: HYPOTHYROIDISM
     Dosage: 175 MCG
     Route: 048
     Dates: start: 20100301
  3. ASS 300 [Concomitant]
     Indication: ATRIAL FIBRILLATION
     Route: 048
     Dates: start: 20060401
  4. ATACAND [Concomitant]
     Indication: HYPERTENSION
     Dosage: 16 MG
     Route: 048
     Dates: start: 20050101
  5. BISOPROLOL FUMARATE [Concomitant]
     Indication: HYPERTENSION
     Dosage: 5 MG
     Route: 048
     Dates: start: 20050101

REACTIONS (5)
  - HYPERHIDROSIS [None]
  - URTICARIA [None]
  - ANGIOEDEMA [None]
  - ANAPHYLACTIC REACTION [None]
  - DIZZINESS [None]
